FAERS Safety Report 5085148-3 (Version None)
Quarter: 2006Q3

REPORT INFORMATION
  Report Type: 
  Country: None (occurrence: None)
  Receive Date: 20060720
  Receipt Date: 20050620
  Transmission Date: 20061208
  Serious: Yes (Hospitalization, Other)
  Sender: FDA-Public Use
  Company Number: 2005067304

PATIENT
  Age: 80 Year
  Sex: Female
  Weight: 88.905 kg

DRUGS (15)
  1. CELEBREX [Suspect]
     Indication: ILL-DEFINED DISORDER
     Dosage: (100 MG),ORAL
     Route: 048
     Dates: start: 20020101
  2. BEXTRA [Suspect]
     Indication: ILL-DEFINED DISORDER
     Dosage: (20 MG),ORAL
     Route: 048
     Dates: start: 20030101
  3. ASPIRIN [Suspect]
     Indication: MYOCARDIAL INFARCTION
     Dosage: (350 MG),ORAL
     Route: 048
     Dates: start: 20040101, end: 20040601
  4. ISOSORBIDE (ISOSORBIDE) [Concomitant]
  5. GLIPIZIDE [Concomitant]
  6. LISINOPRIL [Concomitant]
  7. PLAVIX (CLOPIDOGREL ACETATE) [Concomitant]
  8. PROTONIX [Concomitant]
  9. DYAZIDE [Concomitant]
  10. EYEVITE (MINERALS NOS, VITAMINS NOS) [Concomitant]
  11. METFORMIN HCL [Concomitant]
  12. ZOCOR [Concomitant]
  13. NITROGLYCERIN [Concomitant]
  14. NEURONTIN [Concomitant]
  15. ALBUTEROL [Concomitant]

REACTIONS (8)
  - CONFUSIONAL STATE [None]
  - DEPRESSION [None]
  - HEADACHE [None]
  - INTRA-ABDOMINAL HAEMORRHAGE [None]
  - MYOCARDIAL INFARCTION [None]
  - NAUSEA [None]
  - PAIN [None]
  - VASCULAR OCCLUSION [None]
